FAERS Safety Report 6676799-0 (Version None)
Quarter: 2010Q2

REPORT INFORMATION
  Report Type: 
  Country: None (occurrence: None)
  Receive Date: 20100408
  Receipt Date: 20100402
  Transmission Date: 20101027
  Serious: Yes (Death, Hospitalization)
  Sender: FDA-Public Use
  Company Number: 2009-197931-NL

PATIENT
  Age: 35 Year
  Sex: Female
  Weight: 54.4316 kg

DRUGS (3)
  1. NUVARING [Suspect]
     Indication: CONTRACEPTION
     Dosage: 1 DF
     Dates: start: 20070301, end: 20070601
  2. IMITREX [Concomitant]
  3. WELLBUTRIN [Concomitant]

REACTIONS (10)
  - BLOOD GLUCOSE INCREASED [None]
  - BLOOD PRESSURE INCREASED [None]
  - CEREBRAL INFARCTION [None]
  - CEREBROVASCULAR ACCIDENT [None]
  - COMA [None]
  - HAEMORRHAGIC STROKE [None]
  - INFLUENZA LIKE ILLNESS [None]
  - KETONURIA [None]
  - VASCULITIS CEREBRAL [None]
  - WHITE BLOOD CELL COUNT INCREASED [None]
